FAERS Safety Report 10900209 (Version 2)
Quarter: 2015Q3

REPORT INFORMATION
  Report Type: Spontaneous
  Country: FR (occurrence: FR)
  Receive Date: 20150310
  Receipt Date: 20150713
  Transmission Date: 20151125
  Serious: Yes (Hospitalization)
  Sender: FDA-Public Use
  Company Number: FR-009507513-1503FRA003964

PATIENT
  Age: 47 Year
  Sex: Male

DRUGS (5)
  1. PLITICAN [Concomitant]
     Active Substance: ALIZAPRIDE HYDROCHLORIDE
     Indication: PREMEDICATION
     Dosage: 100 MG TOTAL DAILY DOSE
     Route: 042
  2. BICNU [Suspect]
     Active Substance: CARMUSTINE
     Dosage: 4 VIALS, TOTAL DAILY DOSE 249 MG/M2
     Route: 042
     Dates: start: 20141203, end: 20141203
  3. BICNU [Suspect]
     Active Substance: CARMUSTINE
     Dosage: 1 VIAL, TOTAL DAILY DOSE 249 MG/M2
     Route: 042
     Dates: start: 20141203, end: 20141203
  4. EMEND [Suspect]
     Active Substance: APREPITANT
     Indication: PREMEDICATION
     Dosage: DAILY DOSE 1 CAPSULE
     Route: 048
  5. BICNU [Suspect]
     Active Substance: CARMUSTINE
     Indication: LYMPHOMA
     Dosage: 1 VIAL, TOTAL DAILY DOSE 249 MG/M2
     Route: 042
     Dates: start: 20141203, end: 20141203

REACTIONS (5)
  - Face oedema [Recovered/Resolved]
  - Tachycardia [Recovered/Resolved]
  - Erythema [Recovered/Resolved]
  - Palpitations [Recovered/Resolved]
  - Vomiting [Recovered/Resolved]

NARRATIVE: CASE EVENT DATE: 20141203
